APPROVED DRUG PRODUCT: PIMECROLIMUS
Active Ingredient: PIMECROLIMUS
Strength: 1%
Dosage Form/Route: CREAM;TOPICAL
Application: A211769 | Product #001 | TE Code: AB
Applicant: GLENMARK PHARMACEUTICALS LTD
Approved: Aug 29, 2019 | RLD: No | RS: No | Type: RX